FAERS Safety Report 8428464-7 (Version None)
Quarter: 2012Q2

REPORT INFORMATION
  Report Type: 
  Country: None (occurrence: None)
  Receive Date: 20120612
  Receipt Date: 20120606
  Transmission Date: 20120825
  Serious: No
  Sender: FDA-Public Use
  Company Number: US-PFIZER INC-2012072786

PATIENT
  Sex: Female
  Weight: 54 kg

DRUGS (6)
  1. PROCARDIA XL [Suspect]
     Dosage: UNK
     Dates: end: 20090101
  2. OCUVITE LUTEIN [Concomitant]
     Dosage: UNK
  3. PROCARDIA XL [Suspect]
     Indication: ATRIOVENTRICULAR BLOCK
     Dosage: 30 MG, UNK
     Route: 048
     Dates: start: 19880101
  4. NORVASC [Suspect]
     Indication: ATRIOVENTRICULAR BLOCK
     Dosage: 2.5 MG, UNK
     Route: 048
  5. NIFEDIPINE [Suspect]
     Indication: ATRIOVENTRICULAR BLOCK
     Dosage: 30 MG, 1X/DAY
     Route: 048
     Dates: start: 20090101, end: 20100101
  6. MOEXIPRIL [Concomitant]
     Dosage: 25 MG, 1X/DAY

REACTIONS (4)
  - BLOOD DISORDER [None]
  - ASTHENIA [None]
  - MALAISE [None]
  - DRUG INEFFECTIVE [None]
